FAERS Safety Report 20967700 (Version 1)
Quarter: 2022Q2

REPORT INFORMATION
  Report Type: Report from Study
  Country: US (occurrence: US)
  Receive Date: 20220616
  Receipt Date: 20220616
  Transmission Date: 20220720
  Serious: Yes (Other)
  Sender: FDA-Public Use
  Company Number: US-BAYER-2022A084399

PATIENT
  Age: 9 Year
  Weight: 28 kg

DRUGS (2)
  1. ASPIRIN [Interacting]
     Active Substance: ASPIRIN
  2. WARFARIN [Interacting]
     Active Substance: WARFARIN

REACTIONS (7)
  - Subdural haemorrhage [None]
  - Hemiparesis [None]
  - Facial paralysis [None]
  - Labelled drug-drug interaction medication error [None]
  - Dysarthria [None]
  - Headache [None]
  - Off label use [None]
